FAERS Safety Report 16932810 (Version 1)
Quarter: 2019Q4

REPORT INFORMATION
  Report Type: Spontaneous
  Country: US (occurrence: US)
  Receive Date: 20191018
  Receipt Date: 20191018
  Transmission Date: 20200122
  Serious: No
  Sender: FDA-Public Use
  Company Number: US-TEVA-2019-US-1123339

PATIENT
  Sex: Female

DRUGS (2)
  1. CLONAZEPAM TEVA [Suspect]
     Active Substance: CLONAZEPAM
     Indication: DRUG HYPERSENSITIVITY
     Dosage: DOSE STRENGTH: 1
     Route: 065
  2. CLONAZEPAM TEVA [Suspect]
     Active Substance: CLONAZEPAM
     Indication: NERVOUS SYSTEM DISORDER

REACTIONS (3)
  - Product use in unapproved indication [Unknown]
  - Withdrawal syndrome [Unknown]
  - Wrong technique in product usage process [Unknown]
